FAERS Safety Report 14304910 (Version 1)
Quarter: 2017Q4

REPORT INFORMATION
  Report Type: Report from Study
  Country: JP (occurrence: JP)
  Receive Date: 20171219
  Receipt Date: 20171219
  Transmission Date: 20180321
  Serious: Yes (Other)
  Sender: FDA-Public Use
  Company Number: JP-OTSUKA-JP-2013-10716

PATIENT
  Age: 64 Year
  Sex: Female
  Weight: 54 kg

DRUGS (14)
  1. LITIOMAL [Concomitant]
     Active Substance: LITHIUM CARBONATE
     Indication: BIPOLAR DISORDER
     Dosage: 600 MG, QD
     Route: 048
  2. FLUNITRAZEPAM [Concomitant]
     Active Substance: FLUNITRAZEPAM
     Dosage: TAB
  3. ARIPIPRAZOLE. [Suspect]
     Active Substance: ARIPIPRAZOLE
     Indication: BIPOLAR DISORDER
     Dosage: 12 MG, QD
     Route: 048
     Dates: start: 20121128, end: 20121129
  4. BIO-THREE [Concomitant]
     Active Substance: HERBALS
     Dosage: 3 G, QD
     Route: 048
     Dates: start: 20121128
  5. ARIPIPRAZOLE. [Suspect]
     Active Substance: ARIPIPRAZOLE
     Dosage: + TAB 18MG, QD
     Route: 048
     Dates: start: 20130111, end: 20130117
  6. FLUNITRAZEPAM [Concomitant]
     Active Substance: FLUNITRAZEPAM
     Indication: INSOMNIA
  7. ARIPIPRAZOLE. [Suspect]
     Active Substance: ARIPIPRAZOLE
     Dosage: 24 MG, QD
     Route: 048
     Dates: start: 20121130, end: 20130110
  8. ARIPIPRAZOLE. [Suspect]
     Active Substance: ARIPIPRAZOLE
     Indication: BIPOLAR DISORDER
     Dosage: 28NOV-29NOV12:2D:12MG  30NOV-10JAN13:42D:24MG  11JAN-17JAN13:7D:18MG
     Route: 048
     Dates: start: 20121128, end: 20130117
  9. DORAL [Concomitant]
     Active Substance: QUAZEPAM
     Indication: BIPOLAR DISORDER
     Dosage: 15 MG, QD
     Route: 048
     Dates: start: 20121128
  10. FLUNITRAZEPAM [Concomitant]
     Active Substance: FLUNITRAZEPAM
     Indication: BIPOLAR DISORDER
     Dosage: 2 MG, QD
     Route: 048
  11. AMOBAN [Concomitant]
     Active Substance: ZOPICLONE
     Indication: BIPOLAR DISORDER
     Dosage: 10 MG, QD
     Route: 048
     Dates: start: 20120618
  12. AMOBAN [Concomitant]
     Active Substance: ZOPICLONE
     Indication: INSOMNIA
  13. ZOPICLONE [Concomitant]
     Active Substance: ZOPICLONE
     Dosage: TAB
     Dates: start: 20120618
  14. ARIPIPRAZOLE. [Suspect]
     Active Substance: ARIPIPRAZOLE
     Indication: BIPOLAR DISORDER
     Dosage: + ORAL SOLUTION 18MG, QD
     Route: 048
     Dates: start: 20130111, end: 20130117

REACTIONS (1)
  - Hemiplegia [Recovering/Resolving]

NARRATIVE: CASE EVENT DATE: 20130107
